FAERS Safety Report 14546026 (Version 1)
Quarter: 2018Q1

REPORT INFORMATION
  Report Type: Spontaneous
  Country: US (occurrence: US)
  Receive Date: 20180219
  Receipt Date: 20180219
  Transmission Date: 20180509
  Serious: Yes (Other)
  Sender: FDA-Public Use
  Company Number: US-TEVA-731297USA

PATIENT
  Sex: Female

DRUGS (1)
  1. MIRTAZAPINE. [Suspect]
     Active Substance: MIRTAZAPINE
     Indication: SLEEP DISORDER
     Route: 065

REACTIONS (7)
  - Bedridden [Unknown]
  - Seizure [Unknown]
  - Panic attack [Unknown]
  - Migraine [Unknown]
  - Pain [Unknown]
  - Adverse event [Unknown]
  - Skin burning sensation [Unknown]
